FAERS Safety Report 4437113-4 (Version None)
Quarter: 2004Q3

REPORT INFORMATION
  Report Type: 
  Country: None (occurrence: None)
  Receive Date: 20040726
  Receipt Date: 20040322
  Transmission Date: 20050211
  Serious: No
  Sender: FDA-Public Use
  Company Number: USA040362817

PATIENT
  Age: 66 Year
  Sex: Female
  Weight: 69 kg

DRUGS (20)
  1. FORTEO [Suspect]
     Indication: OSTEOPOROSIS
  2. TRACLEER [Concomitant]
  3. ASPIRIN [Concomitant]
  4. REMINYL [Concomitant]
  5. TRAZODONE [Concomitant]
  6. NITROGLYCERIN [Concomitant]
  7. EFFEXOR XR [Concomitant]
  8. TRICOR [Concomitant]
  9. ZOCOR [Concomitant]
  10. NIFEREX (POLYSACCHARIDE-IRON COMPLEX) [Concomitant]
  11. ACTOS [Concomitant]
  12. PREDNISONE [Concomitant]
  13. GLUCOPHAGE [Concomitant]
  14. CLONAZEPAM [Concomitant]
  15. CALCIUM [Concomitant]
  16. VITAMIN D [Concomitant]
  17. HYZAAR [Concomitant]
  18. PREVACID [Concomitant]
  19. AZATHIOPRINE [Concomitant]
  20. VERAPAMIL [Concomitant]

REACTIONS (1)
  - MEMORY IMPAIRMENT [None]
